FAERS Safety Report 22660041 (Version 1)
Quarter: 2023Q2

REPORT INFORMATION
  Report Type: Spontaneous
  Country: IT (occurrence: IT)
  Receive Date: 20230630
  Receipt Date: 20230630
  Transmission Date: 20230722
  Serious: Yes (Other)
  Sender: FDA-Public Use
  Company Number: IT-PADAGIS-2023PAD00912

PATIENT

DRUGS (3)
  1. IMIQUIMOD [Suspect]
     Active Substance: IMIQUIMOD
     Indication: Anogenital warts
     Dosage: UNK, QD (ONCE DAILY) 3 TIMES/WEEK
     Route: 061
  2. IMIQUIMOD [Suspect]
     Active Substance: IMIQUIMOD
     Dosage: UNK,
     Route: 061
  3. BETAMETHASONE\CALCIPOTRIENE [Suspect]
     Active Substance: BETAMETHASONE\CALCIPOTRIENE
     Indication: Psoriatic arthropathy
     Dosage: UNK
     Route: 061

REACTIONS (2)
  - Psoriatic arthropathy [None]
  - Drug ineffective for unapproved indication [Unknown]
